FAERS Safety Report 24995795 (Version 6)
Quarter: 2025Q3

REPORT INFORMATION
  Report Type: Spontaneous
  Country: JP (occurrence: JP)
  Receive Date: 20250221
  Receipt Date: 20250711
  Transmission Date: 20251021
  Serious: Yes (Other)
  Sender: MERZ
  Company Number: JP-teijin-202500591_XEO_P_1

PATIENT

DRUGS (20)
  1. XEOMIN [Suspect]
     Active Substance: INCOBOTULINUMTOXINA
     Indication: Muscle spasticity
     Dosage: 100 INTERNATIONAL UNIT
     Route: 030
     Dates: start: 20221104, end: 20221104
  2. XEOMIN [Suspect]
     Active Substance: INCOBOTULINUMTOXINA
     Dosage: 150 INTERNATIONAL UNIT
     Route: 030
     Dates: start: 20230203, end: 20230203
  3. XEOMIN [Suspect]
     Active Substance: INCOBOTULINUMTOXINA
     Dosage: 200 INTERNATIONAL UNIT
     Route: 030
     Dates: start: 20230512, end: 20230512
  4. XEOMIN [Suspect]
     Active Substance: INCOBOTULINUMTOXINA
     Dosage: 300 INTERNATIONAL UNIT
     Route: 030
     Dates: start: 20230804, end: 20230804
  5. XEOMIN [Suspect]
     Active Substance: INCOBOTULINUMTOXINA
     Dosage: 300 INTERNATIONAL UNIT
     Route: 030
     Dates: start: 20231130, end: 20231130
  6. XEOMIN [Suspect]
     Active Substance: INCOBOTULINUMTOXINA
     Dosage: 300 INTERNATIONAL UNIT
     Route: 030
     Dates: start: 20240301, end: 20240301
  7. CERCINE [Concomitant]
     Active Substance: DIAZEPAM
     Indication: Hypertonia
     Dosage: 3.5 MILLIGRAM
  8. DANTRIUM [Concomitant]
     Active Substance: DANTROLENE SODIUM
     Indication: Hypertonia
     Dosage: 12.5 MILLIGRAM
  9. EPERISONE HYDROCHLORIDE [Concomitant]
     Active Substance: EPERISONE HYDROCHLORIDE
     Indication: Hypertonia
     Dosage: 50 MILLIGRAM
  10. RISPERIDONE [Concomitant]
     Active Substance: RISPERIDONE
     Indication: Psychomotor hyperactivity
     Dosage: 0.5 MILLIGRAM
  11. TAMSULOSIN HYDROCHLORIDE [Concomitant]
     Active Substance: TAMSULOSIN HYDROCHLORIDE
     Indication: Neurogenic bladder
     Dosage: 0.2 MILLIGRAM
     Dates: start: 20230630
  12. AMITIZA [Concomitant]
     Active Substance: LUBIPROSTONE
     Indication: Constipation
     Dosage: 24 MICROGRAM
  13. ACHILLEA MILLEFOLIUM\RUBIA TINCTURE\SENNA FRUIT EXTRACT\SENNA LEAF\TAR [Concomitant]
     Active Substance: ACHILLEA MILLEFOLIUM\RUBIA TINCTURE\SENNA FRUIT EXTRACT\SENNA LEAF\TARAXACUM OFFICINALE
     Indication: Constipation
     Dosage: 0.5 GRAM
  14. FAMOTIDINE [Concomitant]
     Active Substance: FAMOTIDINE
     Indication: Gastrooesophageal reflux disease
     Dosage: 10 MILLIGRAM
  15. TEPRENONE [Concomitant]
     Active Substance: TEPRENONE
     Indication: Chronic gastritis
     Dosage: 50 MILLIGRAM
  16. MOSAPRIDE CITRATE [Concomitant]
     Active Substance: MOSAPRIDE CITRATE
     Indication: Chronic gastritis
     Dosage: 5 MILLIGRAM
  17. MENATETRENONE [Concomitant]
     Active Substance: MENATETRENONE
     Indication: Vitamin K deficiency
     Dosage: 15 MILLIGRAM
  18. POLAPREZINC [Concomitant]
     Active Substance: POLAPREZINC
     Indication: Zinc deficiency
     Dosage: 50 MILLIGRAM
  19. LEVOCARNITINE [Concomitant]
     Active Substance: LEVOCARNITINE
     Indication: Carnitine deficiency
     Dosage: 5 MILLILITRE
  20. DISTIGMINE BROMIDE [Concomitant]
     Active Substance: DISTIGMINE BROMIDE
     Indication: Neurogenic bladder
     Route: 048
     Dates: end: 202307

REACTIONS (4)
  - Pyelonephritis acute [Recovered/Resolved]
  - Dysuria [Recovering/Resolving]
  - Urinary tract infection [Unknown]
  - Product use in unapproved indication [Unknown]

NARRATIVE: CASE EVENT DATE: 20221104
